FAERS Safety Report 13042564 (Version 4)
Quarter: 2017Q2

REPORT INFORMATION
  Report Type: Spontaneous
  Country: CO (occurrence: CO)
  Receive Date: 20161219
  Receipt Date: 20170421
  Transmission Date: 20170830
  Serious: Yes (Death, Life-Threatening)
  Sender: FDA-Public Use
  Company Number: CO-PFIZER INC-2016565686

PATIENT
  Age: 4 Year
  Sex: Male
  Weight: 20 kg

DRUGS (9)
  1. EPAMIN [Suspect]
     Active Substance: PHENYTOIN SODIUM
     Dosage: 150 MG, 3X/DAY
     Route: 042
     Dates: start: 20161021, end: 20161022
  2. EPAMIN [Suspect]
     Active Substance: PHENYTOIN SODIUM
     Dosage: 1000 MG, SINGLE (A TOTAL OF 4 VIALS (1000 MG) IN 15 MINUTES)
     Route: 042
     Dates: start: 20161021
  3. MIDAZOLAM [Concomitant]
     Active Substance: MIDAZOLAM HYDROCHLORIDE
     Dosage: 2 MG, SINGLE
     Dates: start: 20161021
  4. CLONAZEPAM. [Concomitant]
     Active Substance: CLONAZEPAM
     Dosage: 0.6 MG, SINGLE
     Dates: start: 20161021
  5. EPAMIN [Suspect]
     Active Substance: PHENYTOIN SODIUM
     Indication: EPILEPSY
     Dosage: 2000 MG, SINGLE (A TOTAL OF 8 VIALS (2000 MG) IN 15 MINUTES)
     Route: 042
     Dates: start: 20161021
  6. LACTATED RINGERS [Concomitant]
     Active Substance: CALCIUM CHLORIDE\POTASSIUM CHLORIDE\SODIUM CHLORIDE\SODIUM LACTATE
     Dosage: 500 ML, UNK
  7. EPAMIN [Suspect]
     Active Substance: PHENYTOIN SODIUM
     Indication: STATUS EPILEPTICUS
     Dosage: 50MG/ML VIAL X 5ML
     Route: 042
     Dates: start: 20161014
  8. ATROPINE SULFATE. [Concomitant]
     Active Substance: ATROPINE SULFATE
     Dosage: 4 MG 1 HOUR
     Dates: start: 20161022
  9. EPINEPHRINE BITARTRATE [Concomitant]
     Active Substance: EPINEPHRINE BITARTRATE
     Dosage: 3000 UG 1 HOUR
     Dates: start: 20161022

REACTIONS (5)
  - Product label confusion [Fatal]
  - Respiratory arrest [Recovered/Resolved]
  - Multiple organ dysfunction syndrome [Fatal]
  - Accidental overdose [Fatal]
  - Cardiac arrest [Recovered/Resolved]

NARRATIVE: CASE EVENT DATE: 20161021
